FAERS Safety Report 4578527-1 (Version None)
Quarter: 2005Q1

REPORT INFORMATION
  Report Type: 
  Country: None (occurrence: None)
  Receive Date: 20050204
  Receipt Date: 20050204
  Transmission Date: 20050727
  Serious: Yes (Hospitalization)
  Sender: FDA-Public Use
  Company Number: None

PATIENT
  Sex: Male
  Weight: 80.2867 kg

DRUGS (5)
  1. SEROQUEL [Suspect]
     Indication: PSYCHOTIC DISORDER
     Dosage: 400MG TWICE DAILY ORAL
     Route: 048
     Dates: start: 20040113, end: 20050114
  2. SEROQUEL [Suspect]
     Indication: PSYCHOTIC DISORDER
     Dosage: 300MG TWICE DAILY ORAL
     Route: 048
     Dates: start: 20041116, end: 20050113
  3. DEPAKOTE ER [Concomitant]
  4. ASPIRIN [Concomitant]
  5. LIPITOR [Concomitant]

REACTIONS (4)
  - FIBROSIS [None]
  - PENIS DISORDER [None]
  - PRIAPISM [None]
  - THERAPEUTIC RESPONSE DECREASED [None]
